FAERS Safety Report 8499059-4 (Version None)
Quarter: 2012Q3

REPORT INFORMATION
  Report Type: 
  Country: None (occurrence: None)
  Receive Date: 20120710
  Receipt Date: 20120702
  Transmission Date: 20120928
  Serious: Yes (Hospitalization, Disabling, Other)
  Sender: FDA-Public Use
  Company Number: US-009507513-1203USA03400

PATIENT

DRUGS (7)
  1. BONIVA [Suspect]
     Indication: OSTEOPOROSIS
     Dosage: 150 MG, UNK
     Route: 048
     Dates: start: 20060501, end: 20060701
  2. MK-9278 [Concomitant]
     Route: 048
  3. FOSAMAX [Suspect]
     Indication: OSTEOPOROSIS
     Dosage: 70 MG, QW
     Route: 048
     Dates: start: 19960201, end: 20100701
  4. ASCORBIC ACID [Concomitant]
     Dosage: 500 MG, UNK
     Route: 048
  5. ASPIRIN [Concomitant]
     Dosage: 81 MG, UNK
     Route: 048
  6. FOSAMAX [Suspect]
     Indication: OSTEOPENIA
  7. HYDROCHLOROTHIAZIDE (+) SPIRONOLACTONE [Concomitant]
     Indication: HYPERTENSION
     Route: 048
     Dates: start: 19800101

REACTIONS (28)
  - PLEURAL CALCIFICATION [None]
  - DYSPHAGIA [None]
  - FEMUR FRACTURE [None]
  - RHINITIS [None]
  - NEPHROLITHIASIS [None]
  - ARTHRALGIA [None]
  - HYPERSENSITIVITY [None]
  - LOW TURNOVER OSTEOPATHY [None]
  - OSTEOARTHRITIS [None]
  - DRUG HYPERSENSITIVITY [None]
  - PNEUMONIA [None]
  - CHEST PAIN [None]
  - PHARYNGITIS [None]
  - OSTEOPOROSIS [None]
  - DYSLIPIDAEMIA [None]
  - FALL [None]
  - RIB FRACTURE [None]
  - HYPERMETROPIA [None]
  - PYREXIA [None]
  - TOOTH DISORDER [None]
  - CARDIAC DISORDER [None]
  - MENISCUS LESION [None]
  - ASTIGMATISM [None]
  - PTERYGIUM [None]
  - CATARACT [None]
  - POLYARTHRITIS [None]
  - HYDRONEPHROSIS [None]
  - ARTHROPATHY [None]
